FAERS Safety Report 5923391-9 (Version None)
Quarter: 2008Q4

REPORT INFORMATION
  Report Type: 
  Country: None (occurrence: None)
  Receive Date: 20081020
  Receipt Date: 20081001
  Transmission Date: 20090506
  Serious: No
  Sender: FDA-Public Use
  Company Number: US-BAYER-200833535NA

PATIENT
  Age: 24 Year
  Sex: Female

DRUGS (1)
  1. MIRENA [Suspect]
     Indication: CONTRACEPTION
     Route: 015
     Dates: start: 20080129, end: 20080929

REACTIONS (4)
  - ABDOMINAL PAIN [None]
  - DYSMENORRHOEA [None]
  - MENORRHAGIA [None]
  - VAGINAL HAEMORRHAGE [None]
